FAERS Safety Report 5537069-7 (Version None)
Quarter: 2007Q4

REPORT INFORMATION
  Report Type: 
  Country: None (occurrence: None)
  Receive Date: 20071207
  Receipt Date: 20071127
  Transmission Date: 20080405
  Serious: Yes (Other)
  Sender: FDA-Public Use
  Company Number: US-JNJFOC-20071101026

PATIENT
  Age: 51 Year
  Sex: Male
  Weight: 120.2 kg

DRUGS (6)
  1. ULTRAM ER [Suspect]
     Route: 048
  2. ULTRAM ER [Suspect]
     Indication: PAIN
     Route: 048
  3. ZOCOR [Concomitant]
     Indication: BLOOD CHOLESTEROL INCREASED
     Dosage: 6/7 YEARS
     Route: 065
  4. ZESTRIL [Concomitant]
     Indication: HYPERTENSION
     Route: 065
  5. LASIX [Concomitant]
     Route: 065
  6. INSULIN [Concomitant]
     Indication: DIABETES MELLITUS
     Route: 065

REACTIONS (1)
  - SUICIDAL IDEATION [None]
